FAERS Safety Report 6760339-1 (Version None)
Quarter: 2010Q2

REPORT INFORMATION
  Report Type: 
  Country: None (occurrence: None)
  Receive Date: 20100608
  Receipt Date: 20100527
  Transmission Date: 20101027
  Serious: Yes (Hospitalization)
  Sender: FDA-Public Use
  Company Number: FR-BAYER-201027187GPV

PATIENT
  Age: 83 Year
  Sex: Male

DRUGS (5)
  1. ULTRAVIST 370 [Suspect]
     Indication: COMPUTERISED TOMOGRAM
     Dosage: AS USED: 1 DF
     Route: 042
     Dates: start: 20100322, end: 20100322
  2. TRIATEC [Concomitant]
  3. ASPEGIC 1000 [Concomitant]
  4. COLCHICINE [Concomitant]
     Indication: GOUT
     Dates: start: 20100301
  5. AUGMENTIN '125' [Concomitant]
     Indication: GOUT
     Dates: start: 20100301

REACTIONS (2)
  - HEPATITIS [None]
  - RENAL FAILURE ACUTE [None]
